FAERS Safety Report 21847855 (Version 5)
Quarter: 2023Q1

REPORT INFORMATION
  Report Type: Report from Study
  Country: JP (occurrence: JP)
  Receive Date: 20230111
  Receipt Date: 20230315
  Transmission Date: 20230417
  Serious: No
  Sender: FDA-Public Use
  Company Number: JP-002147023-NVSJ2023JP000503

PATIENT
  Age: 19 Year
  Sex: Female
  Weight: 45 kg

DRUGS (19)
  1. ILARIS [Suspect]
     Active Substance: CANAKINUMAB
     Indication: Familial mediterranean fever
     Dosage: 150 MG
     Route: 058
     Dates: start: 20221103
  2. ILARIS [Suspect]
     Active Substance: CANAKINUMAB
     Dosage: 150 MG
     Route: 058
     Dates: start: 20221201
  3. ILARIS [Suspect]
     Active Substance: CANAKINUMAB
     Dosage: 150 MG
     Route: 058
     Dates: start: 20221229
  4. COLCHICINE [Suspect]
     Active Substance: COLCHICINE
     Indication: Product used for unknown indication
     Dosage: 1 MG
     Route: 048
     Dates: start: 20220818, end: 20220824
  5. COLCHICINE [Suspect]
     Active Substance: COLCHICINE
     Dosage: 1.5 MG
     Route: 048
     Dates: start: 20220825, end: 20220831
  6. COLCHICINE [Suspect]
     Active Substance: COLCHICINE
     Dosage: 2 MG
     Route: 048
     Dates: start: 20220901, end: 20221113
  7. COLCHICINE [Suspect]
     Active Substance: COLCHICINE
     Dosage: 1 MG
     Route: 048
     Dates: start: 20221114, end: 20230131
  8. MIYA [Concomitant]
     Indication: Product used for unknown indication
     Dosage: UNK
     Route: 048
  9. ATABANIN [Concomitant]
     Indication: Product used for unknown indication
     Dosage: UNK
     Route: 048
  10. REBAMIPIDE [Concomitant]
     Active Substance: REBAMIPIDE
     Indication: Product used for unknown indication
     Dosage: UNK
     Route: 048
  11. BERBERINE\GERANIUM [Concomitant]
     Active Substance: BERBERINE\GERANIUM
     Indication: Product used for unknown indication
     Dosage: UNK
     Route: 048
  12. LOPEMIN [Concomitant]
     Indication: Product used for unknown indication
     Dosage: UNK
     Route: 048
  13. PENTASA [Concomitant]
     Active Substance: MESALAMINE
     Indication: Product used for unknown indication
     Dosage: UNK
     Route: 048
  14. AUGMENTIN [Concomitant]
     Active Substance: AMOXICILLIN\CLAVULANATE POTASSIUM
     Indication: Product used for unknown indication
     Dosage: UNK
     Route: 048
  15. AMOXICILLIN [Concomitant]
     Active Substance: AMOXICILLIN
     Indication: Product used for unknown indication
     Dosage: UNK
     Route: 048
  16. CEFMETAZOLE [Concomitant]
     Active Substance: CEFMETAZOLE
     Indication: Product used for unknown indication
     Dosage: UNK
     Route: 065
  17. REMICADE [Concomitant]
     Active Substance: INFLIXIMAB
     Indication: Product used for unknown indication
     Dosage: UNK
     Route: 065
  18. SOLU-CORTEF [Concomitant]
     Active Substance: HYDROCORTISONE SODIUM SUCCINATE
     Indication: Product used for unknown indication
     Dosage: UNK
     Route: 065
  19. AMINO ACIDS\CARBOHYDRATES\MINERALS\SOYBEAN OIL\VITAMINS [Concomitant]
     Active Substance: AMINO ACIDS\CARBOHYDRATES\MINERALS\SOYBEAN OIL\VITAMINS
     Indication: Product used for unknown indication
     Dosage: 900KCAL
     Route: 065

REACTIONS (4)
  - Alopecia [Unknown]
  - Proctalgia [Unknown]
  - Pyrexia [Unknown]
  - Therapeutic product effect incomplete [Unknown]

NARRATIVE: CASE EVENT DATE: 20221114
